FAERS Safety Report 8007498-0 (Version None)
Quarter: 2011Q4

REPORT INFORMATION
  Report Type: 
  Country: None (occurrence: None)
  Receive Date: 20111227
  Receipt Date: 20111220
  Transmission Date: 20120403
  Serious: Yes (Hospitalization)
  Sender: FDA-Public Use
  Company Number: BE-PFIZER INC-2011309534

PATIENT
  Age: 58 Year
  Sex: Female
  Weight: 45 kg

DRUGS (17)
  1. EPIRUBICIN HYDROCHLORIDE [Suspect]
     Indication: BREAST CANCER
     Dosage: UNK
     Dates: start: 20100323
  2. CITALOPRAM [Concomitant]
     Indication: DEPRESSION
     Dosage: UNK
     Dates: start: 20080101
  3. OCTREOTIDE [Concomitant]
     Indication: ILEUS
     Dosage: UNK
     Dates: start: 20100316, end: 20100316
  4. EXEMESTANE [Suspect]
     Indication: BREAST CANCER
     Dosage: 25 MG, 1X/DAY
     Route: 048
     Dates: start: 20080930, end: 20100316
  5. CYCLOPHOSPHAMIDE [Suspect]
     Indication: BREAST CANCER
     Dosage: UNK
     Dates: start: 20100323
  6. OMEPRAZOLE [Concomitant]
     Indication: GASTROOESOPHAGEAL REFLUX DISEASE
     Dosage: UNK
     Dates: start: 20090928
  7. FLUOROURACIL [Suspect]
     Indication: BREAST CANCER
     Dosage: UNK
     Dates: start: 20100323
  8. ALPRAZOLAM [Concomitant]
     Indication: DEPRESSION
     Dosage: UNK
     Dates: start: 20090907
  9. ZOLPIDEM [Concomitant]
     Indication: INSOMNIA
     Dosage: UNK
     Dates: start: 20080101, end: 20100319
  10. ZOLEDRONIC ACID [Concomitant]
     Indication: METASTASES TO BONE
     Dosage: UNK
     Dates: start: 20081003
  11. LEXOTAN [Concomitant]
     Indication: INSOMNIA
     Dosage: UNK
     Dates: start: 20100324
  12. LORAZEPAM [Concomitant]
     Indication: INSOMNIA
     Dosage: UNK
     Dates: start: 20100320, end: 20100323
  13. LITICAN [Concomitant]
     Indication: NAUSEA
     Dosage: UNK
     Dates: start: 20100318
  14. RANITIDINE [Concomitant]
     Indication: ILEUS
     Dosage: UNK
     Dates: start: 20100316
  15. NADROPARINA [Concomitant]
     Indication: PROPHYLAXIS
     Dosage: UNK
     Dates: start: 20100316
  16. OSTEOVIT [Concomitant]
     Indication: METASTASES TO BONE
     Dosage: UNK
     Dates: start: 20081003
  17. OXAPROZIN [Concomitant]
     Indication: BONE PAIN
     Dosage: UNK
     Dates: start: 20090928

REACTIONS (1)
  - PANCYTOPENIA [None]
